FAERS Safety Report 8940055 (Version 1)
Quarter: 2012Q4

REPORT INFORMATION
  Report Type: 
  Country: US (occurrence: US)
  Receive Date: 20121203
  Receipt Date: 20121203
  Transmission Date: 20130627
  Serious: Yes (Hospitalization, Other)
  Sender: FDA-Public Use
  Company Number: US-009507513-2012SP012019

PATIENT
  Age: 64 None
  Sex: Female

DRUGS (3)
  1. RIBAVIRIN [Suspect]
     Indication: HEPATITIS C
     Dosage: UNK UNK, Unknown
     Route: 048
     Dates: start: 20120102, end: 20121106
  2. VICTRELIS [Suspect]
     Indication: HEPATITIS C
     Dosage: UNK UNK, Unknown
     Route: 048
     Dates: start: 20120205, end: 20121106
  3. PEGASYS [Suspect]
     Indication: HEPATITIS C
     Dosage: UNK UNK, Unknown
     Route: 065
     Dates: start: 20120102, end: 20121106

REACTIONS (38)
  - Swollen tongue [Unknown]
  - Anaemia [Unknown]
  - Abdominal pain upper [Unknown]
  - Vomiting [Unknown]
  - Heart rate increased [Unknown]
  - Transfusion [Unknown]
  - Weight decreased [Unknown]
  - Weight decreased [Unknown]
  - Diverticulitis [Unknown]
  - White blood cell count decreased [Unknown]
  - Oral pain [Unknown]
  - Glossodynia [Unknown]
  - Hypoaesthesia oral [Unknown]
  - Blood uric acid increased [Unknown]
  - Back pain [Unknown]
  - Cheilitis [Unknown]
  - Tooth disorder [Unknown]
  - Lip pain [Unknown]
  - Blood bilirubin increased [Unknown]
  - Product taste abnormal [Unknown]
  - Dysgeusia [Unknown]
  - White blood cell count decreased [Unknown]
  - Platelet count decreased [Unknown]
  - Diarrhoea [Unknown]
  - Nausea [Unknown]
  - Pyrexia [Unknown]
  - Asthenia [Unknown]
  - Rash [Unknown]
  - Haemoglobin decreased [Unknown]
  - Blood magnesium decreased [Unknown]
  - Platelet count decreased [Unknown]
  - Haemoglobin decreased [Unknown]
  - Stomatitis [Unknown]
  - Alopecia [Unknown]
  - Abdominal pain upper [Unknown]
  - Abdominal distension [Unknown]
  - Asthenia [Unknown]
  - Gait disturbance [Unknown]
